FAERS Safety Report 16801338 (Version 2)
Quarter: 2019Q3

REPORT INFORMATION
  Report Type: Spontaneous
  Country: DE (occurrence: DE)
  Receive Date: 20190912
  Receipt Date: 20190927
  Transmission Date: 20191005
  Serious: Yes (Other)
  Sender: FDA-Public Use
  Company Number: DE-SA-2019SA251778

PATIENT
  Age: 79 Year
  Sex: Female
  Weight: 50 kg

DRUGS (1)
  1. DUPIXENT [Suspect]
     Active Substance: DUPILUMAB
     Indication: IMMUNISATION
     Dosage: 1 DF, QOW
     Route: 058
     Dates: start: 20180216, end: 20190506

REACTIONS (3)
  - Vaginal haemorrhage [Recovered/Resolved]
  - Product use in unapproved indication [Unknown]
  - Postmenopausal haemorrhage [Unknown]

NARRATIVE: CASE EVENT DATE: 201904
